FAERS Safety Report 12111255 (Version 5)
Quarter: 2019Q1

REPORT INFORMATION
  Report Type: Spontaneous
  Country: US (occurrence: US)
  Receive Date: 20160224
  Receipt Date: 20190102
  Transmission Date: 20190417
  Serious: Yes (Disabling, Other)
  Sender: FDA-Public Use
  Company Number: US-SA-2016SA031069

PATIENT
  Age: 48 Year
  Sex: Female

DRUGS (8)
  1. TOUJEO [Suspect]
     Active Substance: INSULIN GLARGINE
     Indication: TYPE 1 DIABETES MELLITUS
     Dosage: 14 DF,QD
     Route: 051
     Dates: start: 2015
  2. TOUJEO [Suspect]
     Active Substance: INSULIN GLARGINE
     Dosage: 12 DF,QD
     Route: 051
  3. TOUJEO [Suspect]
     Active Substance: INSULIN GLARGINE
     Dosage: 14 DF,QD
     Route: 051
  4. TOUJEO [Suspect]
     Active Substance: INSULIN GLARGINE
     Dosage: 14 DF,QD
     Route: 051
  5. TOUJEO [Suspect]
     Active Substance: INSULIN GLARGINE
     Dosage: 11 DF,QD
     Route: 051
     Dates: start: 201601
  6. NOVOLOG [Suspect]
     Active Substance: INSULIN ASPART
     Dosage: UNK UNK,UNK
     Route: 065
  7. LEVEMIR [Concomitant]
     Active Substance: INSULIN DETEMIR
     Dosage: UNK
  8. LANTUS SOLOSTAR [Suspect]
     Active Substance: INSULIN GLARGINE
     Indication: DIABETES MELLITUS
     Dosage: UNK UNK, UNK
     Route: 065

REACTIONS (5)
  - Drug ineffective [Unknown]
  - Disability [Unknown]
  - Blood glucose increased [Recovering/Resolving]
  - Oedema peripheral [Not Recovered/Not Resolved]
  - Glycosylated haemoglobin increased [Recovering/Resolving]
